FAERS Safety Report 8058594-3 (Version None)
Quarter: 2012Q1

REPORT INFORMATION
  Report Type: 
  Country: None (occurrence: None)
  Receive Date: 20120120
  Receipt Date: 20120118
  Transmission Date: 20120608
  Serious: No
  Sender: FDA-Public Use
  Company Number: US-JNJFOC-20060603745

PATIENT
  Sex: Female
  Weight: 72.2 kg

DRUGS (10)
  1. PLACEBO (GOLIMUMAB) [Suspect]
     Route: 058
     Dates: start: 20060403
  2. PLACEBO [Suspect]
     Route: 058
     Dates: start: 20060525
  3. PLACEBO [Suspect]
     Route: 058
     Dates: start: 20060501
  4. NORVASC [Concomitant]
     Route: 048
     Dates: start: 20020101
  5. PLACEBO [Suspect]
     Indication: ANKYLOSING SPONDYLITIS
     Route: 058
     Dates: start: 20060302
  6. VITAMIN B-12 [Concomitant]
     Route: 048
     Dates: start: 19950101
  7. NADOLOL [Concomitant]
     Route: 048
     Dates: start: 20020101
  8. MULTI-VITAMIN [Concomitant]
     Route: 048
     Dates: start: 20060223
  9. VICODIN [Concomitant]
     Route: 048
     Dates: start: 20020101
  10. DARVOCET [Concomitant]
     Route: 048
     Dates: start: 20050101

REACTIONS (1)
  - BASAL CELL CARCINOMA [None]
